FAERS Safety Report 6377437-7 (Version None)
Quarter: 2009Q3

REPORT INFORMATION
  Report Type: 
  Country: None (occurrence: None)
  Receive Date: 20090925
  Receipt Date: 20090917
  Transmission Date: 20100115
  Serious: Yes (Hospitalization, Other)
  Sender: FDA-Public Use
  Company Number: US-ELI_LILLY_AND_COMPANY-US200908006024

PATIENT
  Age: 83 Year
  Sex: Female
  Weight: 45.805 kg

DRUGS (4)
  1. FORTEO [Suspect]
     Indication: OSTEOPOROSIS
     Dosage: 20 UG, DAILY (1/D)
     Dates: start: 20090422
  2. VERAPAMIL HCL [Concomitant]
     Dosage: UNK, DAILY (1/D)
  3. MOBIC [Concomitant]
     Dosage: 7.5 MG, DAILY (1/D)
  4. DYAZIDE [Concomitant]
     Dosage: UNK, DAILY (1/D)

REACTIONS (4)
  - CHEST PAIN [None]
  - FALL [None]
  - FEMORAL NECK FRACTURE [None]
  - PALPITATIONS [None]
